FAERS Safety Report 8721650 (Version 2)
Quarter: 2012Q4

REPORT INFORMATION
  Report Type: 
  Country: US (occurrence: US)
  Receive Date: 20120814
  Receipt Date: 20120917
  Transmission Date: 20130627
  Serious: Yes (Hospitalization)
  Sender: FDA-Public Use
  Company Number: US-BAYER-2012-080945

PATIENT
  Age: 18 Year
  Sex: Female
  Weight: 68.03 kg

DRUGS (11)
  1. YAZ [Suspect]
     Indication: CONTRACEPTION
     Dosage: UNK
     Dates: start: 20071031, end: 20090827
  2. YAZ [Suspect]
     Indication: ACNE
     Dosage: UNK
     Dates: start: 20100115, end: 20100308
  3. MEDICATIONS FOR MIGRAINE [Concomitant]
  4. MIDODRINE [Concomitant]
     Indication: HYPOTENSION
     Dosage: UNK
     Dates: start: 2010
  5. NSAID^S [Concomitant]
  6. HYDROCODONE W/ACETAMINOPHEN [Concomitant]
     Dosage: 5-325, 1-2 tabs, every 6 hours
     Route: 048
  7. ACZONE 5% [Concomitant]
  8. HYOSCYAMINE [Concomitant]
     Dosage: 0.125 mg, Q4HR
     Route: 048
  9. PAROXETINE [Concomitant]
     Dosage: 12.5 mg, per day
     Route: 048
  10. AMITIZA [Concomitant]
     Dosage: 8 mg, BID
     Route: 048
  11. POTASSIUM [POTASSIUM] [Concomitant]

REACTIONS (8)
  - Pulmonary embolism [Recovered/Resolved]
  - Deep vein thrombosis [None]
  - Injury [Recovered/Resolved]
  - Pain [None]
  - Abdominal pain upper [Recovered/Resolved]
  - Pain in extremity [None]
  - Oedema peripheral [None]
  - Dyspnoea [Recovered/Resolved]
